FAERS Safety Report 5193209-3 (Version None)
Quarter: 2006Q4

REPORT INFORMATION
  Report Type: 
  Country: None (occurrence: None)
  Receive Date: 20061228
  Receipt Date: 20060706
  Transmission Date: 20070319
  Serious: No
  Sender: FDA-Public Use
  Company Number: US-GLAXOSMITHKLINE-A0611326A

PATIENT
  Age: 86 Year
  Sex: Male

DRUGS (6)
  1. AVODART [Suspect]
     Indication: BENIGN PROSTATIC HYPERPLASIA
     Dosage: .5MG AT NIGHT
     Route: 048
     Dates: start: 20060627, end: 20060630
  2. TENORMIN [Concomitant]
  3. NORVASC [Concomitant]
  4. LESCOL [Concomitant]
  5. K-DUR 10 [Concomitant]
  6. BREWERS YEAST TABLETS [Concomitant]

REACTIONS (3)
  - CHILLS [None]
  - DYSPNOEA [None]
  - HYPERHIDROSIS [None]
